FAERS Safety Report 25445786 (Version 1)
Quarter: 2025Q2

REPORT INFORMATION
  Report Type: Spontaneous
  Country: DE (occurrence: DE)
  Receive Date: 20250617
  Receipt Date: 20250617
  Transmission Date: 20250716
  Serious: Yes (Hospitalization)
  Sender: Haleon PLC
  Company Number: DE-SANDOZ-SDZ2025DE039751

PATIENT
  Sex: Female

DRUGS (5)
  1. DICLOFENAC [Suspect]
     Active Substance: DICLOFENAC
     Indication: Psoriatic arthropathy
     Dates: start: 20191010, end: 20210101
  2. DICLOFENAC [Suspect]
     Active Substance: DICLOFENAC
  3. COSENTYX [Suspect]
     Active Substance: SECUKINUMAB
     Indication: Psoriatic arthropathy
     Dates: start: 20200227, end: 20200615
  4. STELARA [Suspect]
     Active Substance: USTEKINUMAB
     Indication: Psoriatic arthropathy
     Dates: start: 20200710, end: 20210430
  5. COSENTYX [Concomitant]
     Active Substance: SECUKINUMAB
     Indication: Product used for unknown indication

REACTIONS (1)
  - Knee arthroplasty [Unknown]
